FAERS Safety Report 6172265-X (Version None)
Quarter: 2009Q2

REPORT INFORMATION
  Report Type: 
  Country: None (occurrence: None)
  Receive Date: 20090424
  Receipt Date: 20081210
  Transmission Date: 20091009
  Serious: No
  Sender: FDA-Public Use
  Company Number: ALL1-2008-03522

PATIENT
  Age: 5 Year
  Sex: Male
  Weight: 22.7 kg

DRUGS (2)
  1. VYVANSE [Suspect]
     Indication: ATTENTION DEFICIT/HYPERACTIVITY DISORDER
     Dosage: 1X/DAY QD(A LITTLE LESS THAN A FULL 30MG CAPSULE), ORAL; 30 MG, 1X/DAY;QD, ORAL
     Route: 048
     Dates: start: 20080701, end: 20081201
  2. VYVANSE [Suspect]
     Indication: ATTENTION DEFICIT/HYPERACTIVITY DISORDER
     Dosage: 1X/DAY QD(A LITTLE LESS THAN A FULL 30MG CAPSULE), ORAL; 30 MG, 1X/DAY;QD, ORAL
     Route: 048
     Dates: start: 20081201

REACTIONS (2)
  - DRUG INEFFECTIVE [None]
  - OFF LABEL USE [None]
